FAERS Safety Report 5176181-1 (Version None)
Quarter: 2006Q4

REPORT INFORMATION
  Report Type: 
  Country: None (occurrence: None)
  Receive Date: 20061215
  Receipt Date: 20060624
  Transmission Date: 20070319
  Serious: No
  Sender: FDA-Public Use
  Company Number: US-AMGEN-KDL184269

PATIENT
  Sex: Female

DRUGS (3)
  1. ENBREL [Suspect]
     Indication: RHEUMATOID ARTHRITIS
     Route: 058
     Dates: start: 20060401
  2. PLAQUENIL [Concomitant]
     Dates: start: 20050101
  3. TREXALL [Concomitant]
     Dates: start: 20050101

REACTIONS (3)
  - CHILLS [None]
  - FLUSHING [None]
  - HYPERHIDROSIS [None]
